FAERS Safety Report 4692213-9 (Version None)
Quarter: 2005Q2

REPORT INFORMATION
  Report Type: 
  Country: None (occurrence: None)
  Receive Date: 20050614
  Receipt Date: 20050602
  Transmission Date: 20051028
  Serious: Yes (Death)
  Sender: FDA-Public Use
  Company Number: 214996

PATIENT
  Age: 82 Year
  Sex: Female

DRUGS (3)
  1. MABTHERA (RITUXIMAB) CONC FOR SOLUTION FOR INFUSION [Suspect]
     Indication: LYMPHOMA
     Dosage: INTRAVENOUS
     Route: 042
     Dates: start: 20041201, end: 20050208
  2. CYCLOPHOSPHAMIDE [Suspect]
     Indication: LYMPHOMA
     Dosage: 50 MG, ORAL
     Dates: start: 20041201, end: 20050208
  3. FLUDARABINE PHOSPHATE [Suspect]
     Indication: LYMPHOMA
     Dosage: INTRAVENOUS
     Route: 042
     Dates: start: 20041201, end: 20050208

REACTIONS (3)
  - APLASTIC ANAEMIA [None]
  - BONE MARROW DEPRESSION [None]
  - SEPTIC SHOCK [None]
